FAERS Safety Report 4511641-5 (Version None)
Quarter: 2004Q4

REPORT INFORMATION
  Report Type: 
  Country: None (occurrence: None)
  Receive Date: 20041129
  Receipt Date: 20040930
  Transmission Date: 20050328
  Serious: No
  Sender: FDA-Public Use
  Company Number: US-BRISTOL-MYERS SQUIBB COMPANY-12742391

PATIENT
  Age: 13 Year
  Sex: Male

DRUGS (5)
  1. ABILIFY [Suspect]
     Indication: BIPOLAR DISORDER
     Dates: start: 20031101
  2. ABILIFY [Suspect]
     Indication: BIPOLAR I DISORDER
     Dates: start: 20031101
  3. DEPAKOTE [Concomitant]
  4. CONCERTA [Concomitant]
  5. SEROQUEL [Concomitant]

REACTIONS (3)
  - ABDOMINAL PAIN UPPER [None]
  - AMNESIA [None]
  - ANOREXIA [None]
